FAERS Safety Report 5939619-5 (Version None)
Quarter: 2008Q4

REPORT INFORMATION
  Report Type: 
  Country: None (occurrence: None)
  Receive Date: 20081030
  Receipt Date: 20081030
  Transmission Date: 20090506
  Serious: Yes (Hospitalization)
  Sender: FDA-Public Use
  Company Number: None

PATIENT
  Age: 60 Year
  Sex: Female

DRUGS (13)
  1. ALLOPURINOL [Suspect]
     Dates: start: 20061117, end: 20070126
  2. AVANDIA [Suspect]
     Dates: end: 20070126
  3. AVAPRO [Concomitant]
  4. GLIPIZIDE [Concomitant]
  5. ALTACE [Concomitant]
  6. VYTORIN [Concomitant]
  7. FUROSEMIDE [Concomitant]
  8. AMILORIDE HCL AND HYDROCHLOROTHIAZIDE [Concomitant]
  9. COLCHICINE [Concomitant]
  10. VITAMIN E [Concomitant]
  11. ASPIRIN [Concomitant]
  12. EPOGEN [Concomitant]
  13. HECTOROL [Concomitant]

REACTIONS (6)
  - DERMATITIS EXFOLIATIVE [None]
  - HEPATOTOXICITY [None]
  - LIVER INJURY [None]
  - OBESITY [None]
  - RENAL FAILURE CHRONIC [None]
  - URINARY TRACT INFECTION [None]
